FAERS Safety Report 12159649 (Version 1)
Quarter: 2016Q1

REPORT INFORMATION
  Report Type: Spontaneous
  Country: US (occurrence: None)
  Receive Date: 20160307
  Receipt Date: 20160307
  Transmission Date: 20160526
  Serious: No
  Sender: FDA-Public Use
  Company Number: None

PATIENT
  Age: 8 Year
  Sex: Male

DRUGS (1)
  1. DEXMETHYLPHENIDATE HYDROCHLORIDE EXTENDED-RELEASE [Suspect]
     Active Substance: DEXMETHYLPHENIDATE HYDROCHLORIDE
     Indication: ATTENTION DEFICIT/HYPERACTIVITY DISORDER
     Route: 048
     Dates: start: 20160203, end: 20160215

REACTIONS (8)
  - Paranoia [None]
  - Irritability [None]
  - Crying [None]
  - Abnormal behaviour [None]
  - Product substitution issue [None]
  - Panic reaction [None]
  - Belligerence [None]
  - Affective disorder [None]

NARRATIVE: CASE EVENT DATE: 20160203
